FAERS Safety Report 7168367-1 (Version None)
Quarter: 2010Q4

REPORT INFORMATION
  Report Type: 
  Country: None (occurrence: None)
  Receive Date: 20101216
  Receipt Date: 20101202
  Transmission Date: 20110411
  Serious: Yes (Other)
  Sender: FDA-Public Use
  Company Number: BR-AMGEN-US378576

PATIENT

DRUGS (9)
  1. ENBREL [Suspect]
     Dosage: 50 MG, QWK
     Route: 058
     Dates: start: 20091012
  2. ESTRADIOL VALERATE [Concomitant]
  3. METHOTREXATE [Concomitant]
     Dosage: UNK UNK, UNK
  4. PREDNISOLONE [Concomitant]
  5. FLUOXETINE [Concomitant]
  6. FOLIC ACID [Concomitant]
  7. NAPROXEN [Concomitant]
  8. LEVOTHYROXINE SODIUM [Concomitant]
  9. CYCLOBENZAPRINE [Concomitant]

REACTIONS (6)
  - BREAST DISORDER [None]
  - BREAST PAIN [None]
  - FEELING HOT [None]
  - HORMONE LEVEL ABNORMAL [None]
  - HYPERHIDROSIS [None]
  - HYPERTENSION [None]
